FAERS Safety Report 10479763 (Version 2)
Quarter: 2014Q3

REPORT INFORMATION
  Report Type: Report from Study
  Country: US (occurrence: US)
  Receive Date: 20140927
  Receipt Date: 20140927
  Transmission Date: 20150326
  Serious: Yes (Other)
  Sender: FDA-Public Use
  Company Number: US-ALEXION PHARMACEUTICALS INC-A200800781

PATIENT
  Sex: Male

DRUGS (1)
  1. SOLIRIS [Suspect]
     Active Substance: ECULIZUMAB
     Indication: PAROXYSMAL NOCTURNAL HAEMOGLOBINURIA
     Dosage: UNK
     Route: 042

REACTIONS (19)
  - Platelet count decreased [Unknown]
  - Fatigue [Unknown]
  - Amnesia [Unknown]
  - Haemoptysis [Unknown]
  - Visual acuity reduced [Unknown]
  - Sleep disorder [Unknown]
  - Pneumonia [Unknown]
  - Haemolysis [Unknown]
  - Localised oedema [Unknown]
  - Blood product transfusion dependent [Unknown]
  - Abdominal distension [Unknown]
  - Biopsy bone marrow [Unknown]
  - Blood lactate dehydrogenase increased [Unknown]
  - Blood creatinine increased [Unknown]
  - Back pain [Unknown]
  - Oedema peripheral [Unknown]
  - Gait disturbance [Unknown]
  - Nasopharyngitis [Unknown]
  - Abdominal pain [Unknown]
